FAERS Safety Report 22599767 (Version 1)
Quarter: 2023Q2

REPORT INFORMATION
  Report Type: Spontaneous
  Country: GB (occurrence: GB)
  Receive Date: 20230614
  Receipt Date: 20230614
  Transmission Date: 20230722
  Serious: Yes (Other)
  Sender: FDA-Public Use
  Company Number: GB-PFIZER INC-PV202300102126

PATIENT
  Age: 1 Decade
  Sex: Male

DRUGS (6)
  1. SIROLIMUS [Suspect]
     Active Substance: SIROLIMUS
     Indication: Tuberous sclerosis complex
     Dosage: UNK
  2. IMATINIB [Concomitant]
     Active Substance: IMATINIB
     Indication: Tuberous sclerosis complex
     Dosage: 2 MG, DAILY
  3. EVEROLIMUS [Concomitant]
     Active Substance: EVEROLIMUS
     Dosage: 7.5 MG, DAILY
  4. DEXAMETHASONE [Concomitant]
     Active Substance: DEXAMETHASONE
     Indication: Chordoma
     Dosage: UNK
  5. ETOPOSIDE [Concomitant]
     Active Substance: ETOPOSIDE
     Indication: Chordoma
     Dosage: 5 MG/M2 (3 DOSES)
  6. ETOPOSIDE [Concomitant]
     Active Substance: ETOPOSIDE
     Dosage: 50 MG/M2 FOR 21 OUT OF 28 DAYS IN EACH CYCLE
     Route: 048

REACTIONS (1)
  - Optic neuritis [Recovering/Resolving]
